FAERS Safety Report 16220113 (Version 1)
Quarter: 2019Q2

REPORT INFORMATION
  Report Type: Spontaneous
  Country: US (occurrence: US)
  Receive Date: 20190420
  Receipt Date: 20190420
  Transmission Date: 20190711
  Serious: Yes (Other)
  Sender: FDA-Public Use
  Company Number: US-009507513-1904USA007659

PATIENT
  Sex: Female

DRUGS (1)
  1. STROMECTOL [Suspect]
     Active Substance: IVERMECTIN
     Dosage: TOTAL OF 4 TABLETS, 3 MILLIGRAM, TWICE
     Route: 048

REACTIONS (3)
  - Coeliac disease [Unknown]
  - Heart rate abnormal [Unknown]
  - Eating disorder [Unknown]
